FAERS Safety Report 9967715 (Version 1)
Quarter: 2014Q1

REPORT INFORMATION
  Report Type: Report from Study
  Country: US (occurrence: US)
  Receive Date: 20140305
  Receipt Date: 20140305
  Transmission Date: 20141002
  Serious: No
  Sender: FDA-Public Use
  Company Number: US-ABBVIE-13P-163-1139016-00

PATIENT
  Sex: Male
  Weight: 75.82 kg

DRUGS (8)
  1. HUMIRA [Suspect]
     Indication: PSORIASIS
     Dates: start: 201304
  2. HUMIRA [Suspect]
     Indication: PSORIATIC ARTHROPATHY
  3. ENBREL [Suspect]
     Indication: PRODUCT USED FOR UNKNOWN INDICATION
  4. UNNAMED MEDICATION [Concomitant]
     Indication: DIABETES MELLITUS
     Route: 048
  5. UNNAMED EYE DROPS [Concomitant]
     Indication: GLAUCOMA
  6. UNNAMED MEDICATION [Concomitant]
     Indication: HYPERTENSION
  7. UNNAMED MEDICATION [Concomitant]
     Indication: HYPERTENSION
  8. UNNAMED MEDICATION [Concomitant]
     Indication: HYPERTENSION

REACTIONS (4)
  - Pruritus [Not Recovered/Not Resolved]
  - Drug therapy [Not Recovered/Not Resolved]
  - Drug ineffective [Not Recovered/Not Resolved]
  - Weight decreased [Not Recovered/Not Resolved]
